FAERS Safety Report 8113051-0 (Version None)
Quarter: 2012Q1

REPORT INFORMATION
  Report Type: 
  Country: None (occurrence: None)
  Receive Date: 20120203
  Receipt Date: 20120201
  Transmission Date: 20120608
  Serious: Yes (Death, Hospitalization)
  Sender: FDA-Public Use
  Company Number: US-GLAXOSMITHKLINE-A0948652A

PATIENT
  Age: 83 Year
  Sex: Female

DRUGS (6)
  1. PRILOSEC [Concomitant]
  2. PLAVIX [Concomitant]
  3. FOLIC ACID [Concomitant]
  4. ACYCLOVIR [Concomitant]
  5. PROMACTA [Suspect]
     Indication: IDIOPATHIC THROMBOCYTOPENIC PURPURA
     Dosage: 25MG TWICE PER DAY
     Route: 048
     Dates: start: 20101220, end: 20111001
  6. SIMVASTATIN [Concomitant]

REACTIONS (7)
  - MENTAL IMPAIRMENT [None]
  - HIP FRACTURE [None]
  - MALNUTRITION [None]
  - GENERAL PHYSICAL HEALTH DETERIORATION [None]
  - CARDIAC FAILURE [None]
  - ASTHENIA [None]
  - FALL [None]
